FAERS Safety Report 8735918 (Version 2)
Quarter: 2012Q4

REPORT INFORMATION
  Report Type: 
  Country: JP (occurrence: JP)
  Receive Date: 20120822
  Receipt Date: 20120904
  Transmission Date: 20130627
  Serious: Yes (Hospitalization, Other)
  Sender: FDA-Public Use
  Company Number: JP-PFIZER INC-2012203593

PATIENT
  Age: 45 Year
  Sex: Female
  Weight: 61.9 kg

DRUGS (11)
  1. CELECOX [Suspect]
     Indication: RHEUMATOID ARTHRITIS
     Dosage: 100 mg, 2x/day
     Route: 048
     Dates: start: 20091216
  2. OLMESARTAN [Suspect]
     Indication: HYPERTENSION
     Dosage: 20 mg, 1x/day
     Route: 048
     Dates: start: 20120412, end: 20120731
  3. CERTOLIZUMAB PEGOL [Suspect]
     Indication: RHEUMATOID ARTHRITIS
     Dosage: 200 mg,2 in 1 wk
     Route: 058
     Dates: start: 20090703, end: 20101014
  4. CERTOLIZUMAB PEGOL [Suspect]
     Dosage: 400 mg, monthly
     Route: 058
     Dates: start: 20101027, end: 20120509
  5. CALBLOCK [Suspect]
     Indication: HYPERTENSION
     Dosage: 8 mg, 2x/day
     Route: 048
     Dates: start: 20120412
  6. CALBLOCK [Suspect]
     Dosage: 8 mg, 1x/day
     Route: 048
  7. RHEUMATREX [Concomitant]
     Indication: RHEUMATOID ARTHRITIS
     Dosage: UNK
     Route: 065
     Dates: start: 20110324
  8. FOLIAMIN [Concomitant]
     Indication: PROPHYLAXIS
     Dosage: UNK
     Route: 065
     Dates: start: 20110327
  9. SELBEX [Concomitant]
     Indication: GASTRITIS PROPHYLAXIS
     Dosage: UNK
     Route: 065
     Dates: start: 20091216
  10. MOHRUS [Concomitant]
     Indication: BACK PAIN
     Dosage: UNK (Formulation: Tape)
     Route: 065
     Dates: start: 20120315
  11. LOXONIN [Concomitant]
     Indication: BACK PAIN
     Dosage: UNK
     Route: 065
     Dates: start: 20120315

REACTIONS (7)
  - Sudden hearing loss [Recovered/Resolved with Sequelae]
  - Vertigo [Recovering/Resolving]
  - Vomiting [Unknown]
  - Tinnitus [Recovering/Resolving]
  - Hypoaesthesia [Unknown]
  - Nystagmus [Unknown]
  - Nausea [Unknown]
